FAERS Safety Report 17139785 (Version 1)
Quarter: 2019Q4

REPORT INFORMATION
  Report Type: Spontaneous
  Country: FR (occurrence: FR)
  Receive Date: 20191211
  Receipt Date: 20191211
  Transmission Date: 20200122
  Serious: Yes (Other)
  Sender: FDA-Public Use
  Company Number: FR-ZYDUS-021667

PATIENT
  Age: 69 Year
  Sex: Female
  Weight: 51.8 kg

DRUGS (5)
  1. AMLODIPINE [Suspect]
     Active Substance: AMLODIPINE BESYLATE
     Indication: HYPERTENSION
     Route: 048
     Dates: start: 20171118, end: 20171201
  2. TRAMADOL. [Suspect]
     Active Substance: TRAMADOL
     Indication: PAIN
     Route: 048
     Dates: start: 20171112, end: 20171201
  3. XATRAL [Suspect]
     Active Substance: ALFUZOSIN
     Indication: PRODUCT USED FOR UNKNOWN INDICATION
     Dosage: ()
     Route: 048
     Dates: start: 20171129, end: 20171130
  4. BUDESONIDE ARROW [Suspect]
     Active Substance: BUDESONIDE
     Indication: BRONCHIAL OBSTRUCTION
     Dosage: ()
     Route: 055
     Dates: start: 20171114
  5. LEVETIRACETAM MYLAN PHARMA [Suspect]
     Active Substance: LEVETIRACETAM
     Indication: SEIZURE
     Route: 048
     Dates: start: 20171106

REACTIONS (1)
  - Neutropenia [Recovered/Resolved]

NARRATIVE: CASE EVENT DATE: 20171201
